FAERS Safety Report 10145568 (Version 1)
Quarter: 2014Q2

REPORT INFORMATION
  Report Type: Spontaneous
  Country: US (occurrence: US)
  Receive Date: 20140501
  Receipt Date: 20140501
  Transmission Date: 20141212
  Serious: Yes (Other)
  Sender: FDA-Public Use
  Company Number: US-TEVA-478272USA

PATIENT
  Sex: Female

DRUGS (1)
  1. COPAXONE [Suspect]

REACTIONS (5)
  - Multiple sclerosis [Unknown]
  - Skin necrosis [Unknown]
  - Urticaria [Unknown]
  - Mouth ulceration [Unknown]
  - Asthenia [Unknown]
